FAERS Safety Report 7004962-8 (Version None)
Quarter: 2010Q3

REPORT INFORMATION
  Report Type: 
  Country: None (occurrence: None)
  Receive Date: 20100921
  Receipt Date: 20100916
  Transmission Date: 20110219
  Serious: Yes (Hospitalization)
  Sender: FDA-Public Use
  Company Number: IT-BAYER-201039796GPV

PATIENT
  Age: 79 Year
  Sex: Female

DRUGS (9)
  1. ASPIRIN [Suspect]
     Indication: PRODUCT USED FOR UNKNOWN INDICATION
     Dosage: TOTAL DAILY DOSE: 100 MG
     Route: 048
     Dates: start: 20100617, end: 20100910
  2. MODURETIC 5-50 [Suspect]
     Indication: HYPERTENSION
     Route: 048
     Dates: start: 20100617, end: 20100910
  3. MINIAS (LORMETAZEPAM) [Suspect]
     Indication: PRODUCT USED FOR UNKNOWN INDICATION
     Route: 048
     Dates: start: 20100802, end: 20100910
  4. NEUPRO [Suspect]
     Indication: PRODUCT USED FOR UNKNOWN INDICATION
     Dosage: TOTAL DAILY DOSE: 1 DF
     Route: 062
     Dates: start: 20100802, end: 20100910
  5. MADOPAR [Concomitant]
     Indication: PARKINSON'S DISEASE
     Route: 048
  6. REQUIP [Concomitant]
     Route: 048
  7. SINEMET [Concomitant]
     Route: 048
  8. AMANTADINE HCL [Concomitant]
     Route: 048
  9. LASIX [Concomitant]

REACTIONS (7)
  - CONFUSIONAL STATE [None]
  - FALL [None]
  - FATIGUE [None]
  - GAIT DISTURBANCE [None]
  - HYPERKALAEMIA [None]
  - SPEECH DISORDER [None]
  - SUBARACHNOID HAEMORRHAGE [None]
